FAERS Safety Report 7417000-X (Version None)
Quarter: 2011Q2

REPORT INFORMATION
  Report Type: 
  Country: None (occurrence: None)
  Receive Date: 20110415
  Receipt Date: 20110407
  Transmission Date: 20111010
  Serious: Yes (Hospitalization)
  Sender: FDA-Public Use
  Company Number: US-US-EMD SERONO, INC.-7052691

PATIENT
  Sex: Male

DRUGS (3)
  1. REBIF [Suspect]
     Indication: PRIMARY PROGRESSIVE MULTIPLE SCLEROSIS
     Route: 058
     Dates: start: 20090107
  2. PREDNISONE TAB [Concomitant]
     Indication: PRIMARY PROGRESSIVE MULTIPLE SCLEROSIS
  3. IBUPROFEN [Concomitant]
     Indication: PREMEDICATION

REACTIONS (4)
  - MULTIPLE SCLEROSIS RELAPSE [None]
  - URINARY TRACT INFECTION [None]
  - BLOOD IRON DECREASED [None]
  - INJECTION SITE ERYTHEMA [None]
